FAERS Safety Report 20582697 (Version 1)
Quarter: 2022Q1

REPORT INFORMATION
  Report Type: Spontaneous
  Country: JP (occurrence: JP)
  Receive Date: 20220311
  Receipt Date: 20220311
  Transmission Date: 20220423
  Serious: Yes (Hospitalization)
  Sender: FDA-Public Use
  Company Number: JP-ALLERGAN-2208036US

PATIENT

DRUGS (5)
  1. ASENAPINE MALEATE [Suspect]
     Active Substance: ASENAPINE MALEATE
     Indication: Schizophrenia
     Dosage: 5 MG
     Route: 060
     Dates: start: 20210816, end: 20210914
  2. PALIPERIDONE [Concomitant]
     Active Substance: PALIPERIDONE
  3. LURASIDONE [Concomitant]
     Active Substance: LURASIDONE
  4. BLONANSERIN [Concomitant]
     Active Substance: BLONANSERIN
  5. ARIPIPRAZOLE [Concomitant]
     Active Substance: ARIPIPRAZOLE

REACTIONS (3)
  - Disorientation [Unknown]
  - Hot flush [Unknown]
  - Restlessness [Unknown]

NARRATIVE: CASE EVENT DATE: 20210101
